FAERS Safety Report 9354457 (Version 1)
Quarter: 2013Q2

REPORT INFORMATION
  Report Type: Spontaneous
  Country: FR (occurrence: FR)
  Receive Date: 20130618
  Receipt Date: 20130618
  Transmission Date: 20140414
  Serious: Yes (Other)
  Sender: FDA-Public Use
  Company Number: FR-TEVA-412926ISR

PATIENT
  Age: 59 Year
  Sex: Male

DRUGS (1)
  1. FUROSEMIDE TEVA [Suspect]
     Dosage: LONG-TERM TREATMENT

REACTIONS (3)
  - Cardiac discomfort [Unknown]
  - Chest pain [Unknown]
  - Urinary tract disorder [Recovering/Resolving]
